FAERS Safety Report 4454257-1 (Version None)
Quarter: 2004Q3

REPORT INFORMATION
  Report Type: 
  Country: None (occurrence: None)
  Receive Date: 20040826
  Receipt Date: 20040621
  Transmission Date: 20050211
  Serious: No
  Sender: FDA-Public Use
  Company Number: WAES 0406USA02029

PATIENT
  Age: 69 Year
  Sex: Male

DRUGS (6)
  1. ZETIA [Suspect]
     Indication: HYPERCHOLESTEROLAEMIA
     Dosage: 10 MG/DAILY/PO
     Route: 048
     Dates: start: 20040501
  2. DILANTIN [Concomitant]
  3. EQUATE [Concomitant]
  4. LOPRESSOR [Concomitant]
  5. CYANOCOBALAMIN [Concomitant]
  6. VITAMIN E [Concomitant]

REACTIONS (1)
  - MUSCLE CRAMP [None]
